FAERS Safety Report 8223702-8 (Version None)
Quarter: 2012Q1

REPORT INFORMATION
  Report Type: 
  Country: None (occurrence: None)
  Receive Date: 20120321
  Receipt Date: 20120307
  Transmission Date: 20120608
  Serious: Yes (Hospitalization)
  Sender: FDA-Public Use
  Company Number: DE-RANBAXY-2012R1-53863

PATIENT
  Age: 20 Year
  Sex: Female

DRUGS (5)
  1. RISPERIDONE [Suspect]
     Indication: PRODUCT USED FOR UNKNOWN INDICATION
     Dosage: 5 MG DAILY
     Route: 048
     Dates: start: 20120111
  2. DIAZEPAM [Suspect]
     Indication: PRODUCT USED FOR UNKNOWN INDICATION
     Dosage: 10 MG DAILY
     Route: 030
     Dates: start: 20120111, end: 20120112
  3. CIATYL-Z ACUPHASE [Suspect]
     Dosage: 100 MG DAILY
     Route: 030
     Dates: start: 20120116
  4. DIAZEPAM [Suspect]
     Dosage: 15 MG DAILY
     Route: 048
     Dates: start: 20120113
  5. CIATYL-Z ACUPHASE [Suspect]
     Indication: PRODUCT USED FOR UNKNOWN INDICATION
     Dosage: 100 MG DAILY
     Route: 030
     Dates: start: 20120113

REACTIONS (1)
  - URINARY HESITATION [None]
